FAERS Safety Report 17084234 (Version 1)
Quarter: 2019Q4

REPORT INFORMATION
  Report Type: Spontaneous
  Country: GB (occurrence: GB)
  Receive Date: 20191127
  Receipt Date: 20191127
  Transmission Date: 20200122
  Serious: Yes (Hospitalization, Other)
  Sender: FDA-Public Use
  Company Number: GB-BAUSCH-BL-2019-061914

PATIENT
  Sex: Female

DRUGS (6)
  1. RITUXIMAB. [Concomitant]
     Active Substance: RITUXIMAB
     Indication: CEREBELLAR ATAXIA
     Dosage: SINGLE DOSE
     Route: 042
     Dates: start: 2011, end: 2011
  2. PREDNISOLONE. [Suspect]
     Active Substance: PREDNISOLONE
     Indication: STIFF PERSON SYNDROME
     Dosage: WEANED OVER THREE MONTHS TO STOP
     Route: 048
     Dates: start: 2012, end: 2012
  3. INFLIXIMAB [Concomitant]
     Active Substance: INFLIXIMAB
     Indication: CEREBELLAR ATAXIA
  4. PREDNISOLONE. [Suspect]
     Active Substance: PREDNISOLONE
     Indication: CEREBELLAR ATAXIA
     Route: 048
     Dates: start: 2012
  5. INFLIXIMAB [Concomitant]
     Active Substance: INFLIXIMAB
     Indication: STIFF PERSON SYNDROME
     Dosage: 2 DOSES
     Route: 042
     Dates: start: 2011, end: 2011
  6. RITUXIMAB. [Concomitant]
     Active Substance: RITUXIMAB
     Indication: STIFF PERSON SYNDROME

REACTIONS (2)
  - Diabetic ketoacidosis [Unknown]
  - Type 1 diabetes mellitus [Unknown]

NARRATIVE: CASE EVENT DATE: 2012
